FAERS Safety Report 12210972 (Version 1)
Quarter: 2016Q1

REPORT INFORMATION
  Report Type: Spontaneous
  Country: US (occurrence: US)
  Receive Date: 20160325
  Receipt Date: 20160325
  Transmission Date: 20160526
  Serious: No
  Sender: FDA-Public Use
  Company Number: 11-000514 WARNER CHILCOTT

PATIENT
  Age: 84 Year
  Sex: Female
  Weight: 79.09 kg

DRUGS (10)
  1. ESTRACE [Suspect]
     Active Substance: ESTRADIOL
     Indication: MEDICAL DEVICE REMOVAL
     Route: 061
  2. METROGEL [Concomitant]
     Active Substance: METRONIDAZOLE
  3. VITAMIN D [Concomitant]
     Active Substance: CHOLECALCIFEROL
  4. METFORMIN [Concomitant]
     Active Substance: METFORMIN HYDROCHLORIDE
  5. COQ10 [Concomitant]
     Active Substance: UBIDECARENONE
  6. LOVASTATIN. [Concomitant]
     Active Substance: LOVASTATIN
  7. PRESERVISION LUTEIN EYE VITA.+MIN.SUP.SOFTG. [Concomitant]
  8. LYSINE [Concomitant]
     Active Substance: LYSINE
  9. DIURETICS [Concomitant]
     Active Substance: UNSPECIFIED INGREDIENT
  10. DICLOFENAC SODIUM. [Concomitant]
     Active Substance: DICLOFENAC SODIUM

REACTIONS (5)
  - Vaginal haemorrhage [None]
  - Skin cancer [None]
  - Breast cancer [None]
  - Product use issue [None]
  - Expired product administered [None]

NARRATIVE: CASE EVENT DATE: 2005
